FAERS Safety Report 5366767-3 (Version None)
Quarter: 2007Q2

REPORT INFORMATION
  Report Type: 
  Country: None (occurrence: None)
  Receive Date: 20070622
  Receipt Date: 20060906
  Transmission Date: 20071010
  Serious: No
  Sender: FDA-Public Use
  Company Number: US-ASTRAZENECA-2006UW17558

PATIENT
  Age: 51 Year
  Sex: Female
  Weight: 81.6 kg

DRUGS (4)
  1. RHINOCORT [Suspect]
     Indication: PAROSMIA
     Dosage: 1 SPRAY
     Route: 045
  2. HYDROCHLOROTHIAZIDE [Concomitant]
  3. ADVAIR DISKUS 100/50 [Concomitant]
  4. VITAMIN D [Concomitant]

REACTIONS (1)
  - HYPOAESTHESIA [None]
